FAERS Safety Report 6958354-8 (Version None)
Quarter: 2010Q3

REPORT INFORMATION
  Report Type: 
  Country: None (occurrence: None)
  Receive Date: 20100831
  Receipt Date: 20100824
  Transmission Date: 20110219
  Serious: Yes (Other)
  Sender: FDA-Public Use
  Company Number: CA-JNJFOC-20100307017

PATIENT
  Sex: Female
  Weight: 52 kg

DRUGS (2)
  1. REMICADE [Suspect]
     Indication: CROHN'S DISEASE
     Dosage: RECEIVED INFUSION AT WEEK 0, 2 AND 6 THEN EVERY 8 WEEKS (300 MG)
     Route: 042
  2. IMURAN [Concomitant]

REACTIONS (1)
  - LUPUS-LIKE SYNDROME [None]
